FAERS Safety Report 10754706 (Version 2)
Quarter: 2015Q2

REPORT INFORMATION
  Report Type: Spontaneous
  Country: US (occurrence: US)
  Receive Date: 20150202
  Receipt Date: 20150630
  Transmission Date: 20150821
  Serious: Yes (Hospitalization)
  Sender: FDA-Public Use
  Company Number: US-PFIZER INC-2015038351

PATIENT
  Sex: Female

DRUGS (1)
  1. CLINDAMYCIN HCL [Suspect]
     Active Substance: CLINDAMYCIN HYDROCHLORIDE
     Indication: GARDNERELLA INFECTION
     Dosage: UNK (3 MORE DAYS )

REACTIONS (4)
  - Drug ineffective [Unknown]
  - Visual brightness [Unknown]
  - Vulvovaginal burning sensation [Unknown]
  - Fungal infection [Recovered/Resolved]
